FAERS Safety Report 9245446 (Version 1)
Quarter: 2013Q2

REPORT INFORMATION
  Report Type: Spontaneous
  Country: NL (occurrence: NL)
  Receive Date: 20130422
  Receipt Date: 20130422
  Transmission Date: 20140414
  Serious: Yes (Other)
  Sender: FDA-Public Use
  Company Number: NL-ROCHE-1214480

PATIENT
  Sex: Female

DRUGS (3)
  1. CELLCEPT [Suspect]
     Indication: AUTOIMMUNE HEPATITIS
     Route: 065
     Dates: start: 20130412
  2. CELLCEPT [Suspect]
     Route: 065
     Dates: start: 201010, end: 201103
  3. PREDNISONE [Concomitant]
     Indication: AUTOIMMUNE HEPATITIS

REACTIONS (4)
  - Visual impairment [Unknown]
  - Macular oedema [Unknown]
  - Eye complication associated with device [Unknown]
  - Cataract [Unknown]
